FAERS Safety Report 12548363 (Version 1)
Quarter: 2016Q3

REPORT INFORMATION
  Report Type: Report from Study
  Country: US (occurrence: US)
  Receive Date: 20160712
  Receipt Date: 20160712
  Transmission Date: 20161109
  Serious: Yes (Other)
  Sender: FDA-Public Use
  Company Number: US-009507513-1607USA002517

PATIENT

DRUGS (2)
  1. TEMODAR [Suspect]
     Active Substance: TEMOZOLOMIDE
     Indication: GLIOBLASTOMA
  2. BEVACIZUMAB [Suspect]
     Active Substance: BEVACIZUMAB
     Indication: GLIOBLASTOMA

REACTIONS (31)
  - Hypokalaemia [Unknown]
  - Ear discomfort [Unknown]
  - Fatigue [Unknown]
  - Dizziness [Unknown]
  - Dental caries [Unknown]
  - Stomatitis [Unknown]
  - Hyperglycaemia [Unknown]
  - Arthralgia [Unknown]
  - Myalgia [Unknown]
  - Headache [Unknown]
  - Hypertension [Unknown]
  - Pyramidal tract syndrome [Unknown]
  - Vomiting [Unknown]
  - Blindness transient [Unknown]
  - Anaemia [Unknown]
  - White blood cell count decreased [Unknown]
  - Lymphocyte count decreased [Unknown]
  - Memory impairment [Unknown]
  - Pollakiuria [Unknown]
  - Proteinuria [Unknown]
  - Cough [Unknown]
  - Seizure [Unknown]
  - Pain in extremity [Unknown]
  - Constipation [Unknown]
  - Flatulence [Unknown]
  - Nausea [Unknown]
  - Hyperhidrosis [Unknown]
  - Decreased appetite [Unknown]
  - Hyponatraemia [Unknown]
  - Pyrexia [Unknown]
  - Upper-airway cough syndrome [Unknown]
